FAERS Safety Report 19964250 (Version 1)
Quarter: 2021Q4

REPORT INFORMATION
  Report Type: Spontaneous
  Country: NL (occurrence: NL)
  Receive Date: 20211018
  Receipt Date: 20211018
  Transmission Date: 20220303
  Serious: Yes (Other)
  Sender: FDA-Public Use
  Company Number: None

PATIENT
  Sex: Female
  Weight: 63 kg

DRUGS (1)
  1. METOPROLOL [Suspect]
     Active Substance: METOPROLOL
     Indication: Migraine
     Dosage: 50 MILLIGRAM, QD, 1 X PER DAG 1 STUK
     Route: 065
     Dates: start: 20210401, end: 20210923

REACTIONS (2)
  - Hallucination [Unknown]
  - Abnormal dreams [Unknown]
